FAERS Safety Report 5495065-2 (Version None)
Quarter: 2007Q4

REPORT INFORMATION
  Report Type: 
  Country: None (occurrence: None)
  Receive Date: 20071015
  Receipt Date: 20061207
  Transmission Date: 20080405
  Serious: Yes (Other)
  Sender: FDA-Public Use
  Company Number: S06-USA-05167-01

PATIENT
  Age: 36 Year
  Sex: Male

DRUGS (6)
  1. LEXAPRO [Suspect]
     Indication: ANXIETY
     Dosage: 10 MG QD PO
     Route: 048
     Dates: start: 20061129
  2. PROTONIX [Concomitant]
  3. DIOVAN [Concomitant]
  4. COREG [Concomitant]
  5. SINGULAIR [Concomitant]
  6. LAMISIL [Concomitant]

REACTIONS (5)
  - CONFUSIONAL STATE [None]
  - HYPERHIDROSIS [None]
  - IMPATIENCE [None]
  - PSYCHOMOTOR HYPERACTIVITY [None]
  - SUICIDAL IDEATION [None]
